FAERS Safety Report 24534922 (Version 1)
Quarter: 2024Q4

REPORT INFORMATION
  Report Type: Spontaneous
  Country: US (occurrence: None)
  Receive Date: 20241021
  Receipt Date: 20241021
  Transmission Date: 20250114
  Serious: Yes (unspecified)
  Sender: Public
  Company Number: None

PATIENT
  Age: 42 Year
  Sex: Female
  Weight: 65.25 kg

DRUGS (3)
  1. COSMETICS [Suspect]
     Active Substance: COSMETICS
     Indication: Facial cosmetic procedure
     Dosage: FREQUENCY : AT BEDTIME;?
     Route: 061
     Dates: start: 20240816, end: 20241021
  2. THE ORDINARY SALICYLIC ACID 2% SOLUTION [Suspect]
     Active Substance: SALICYLIC ACID
  3. LISINOPRIL [Concomitant]
     Active Substance: LISINOPRIL

REACTIONS (1)
  - Hypersensitivity [None]

NARRATIVE: CASE EVENT DATE: 20240920
